FAERS Safety Report 7010299-3 (Version None)
Quarter: 2010Q3

REPORT INFORMATION
  Report Type: 
  Country: None (occurrence: None)
  Receive Date: 20100923
  Receipt Date: 20100916
  Transmission Date: 20110219
  Serious: Yes (Other)
  Sender: FDA-Public Use
  Company Number: A0882704A

PATIENT
  Age: 78 Year
  Sex: Male

DRUGS (4)
  1. ADVAIR DISKUS 100/50 [Suspect]
     Indication: CHRONIC OBSTRUCTIVE PULMONARY DISEASE
     Route: 055
  2. LUPRON DEPOT [Suspect]
     Indication: PROSTATE CANCER
     Dosage: 1INJ AS DIRECTED
     Dates: start: 20000101
  3. LORATADINE [Concomitant]
     Dates: start: 20100801
  4. BLOOD PRESSURE MEDICATION [Concomitant]

REACTIONS (2)
  - HOT FLUSH [None]
  - PNEUMONIA [None]
